FAERS Safety Report 7872745-2 (Version None)
Quarter: 2011Q4

REPORT INFORMATION
  Report Type: 
  Country: None (occurrence: None)
  Receive Date: 20111030
  Receipt Date: 20110420
  Transmission Date: 20120403
  Serious: No
  Sender: FDA-Public Use
  Company Number: US-AMGEN-USASP2011019705

PATIENT
  Age: 46 Year
  Sex: Male

DRUGS (1)
  1. ENBREL [Suspect]
     Indication: PSORIASIS
     Dosage: 50 MG, 2 TIMES/WK
     Dates: start: 20110316, end: 20110402

REACTIONS (4)
  - PARANASAL SINUS HYPERSECRETION [None]
  - COUGH [None]
  - SINUSITIS [None]
  - OROPHARYNGEAL PAIN [None]
